FAERS Safety Report 11214943 (Version 1)
Quarter: 2015Q2

REPORT INFORMATION
  Report Type: Spontaneous
  Country: US (occurrence: US)
  Receive Date: 20150624
  Receipt Date: 20150624
  Transmission Date: 20150821
  Serious: Yes (Other)
  Sender: FDA-Public Use
  Company Number: US-BAYER-2015-355328

PATIENT
  Age: 30 Year
  Sex: Female
  Weight: 119.7 kg

DRUGS (1)
  1. MIRENA [Suspect]
     Active Substance: LEVONORGESTREL
     Dosage: 20 MCG/24HR, CONT
     Route: 015
     Dates: start: 20140219

REACTIONS (2)
  - Transient ischaemic attack [None]
  - Coronary artery occlusion [None]

NARRATIVE: CASE EVENT DATE: 201505
